FAERS Safety Report 5319872-1 (Version None)
Quarter: 2007Q2

REPORT INFORMATION
  Report Type: 
  Country: None (occurrence: None)
  Receive Date: 20070509
  Receipt Date: 20070507
  Transmission Date: 20071010
  Serious: Yes (Death)
  Sender: FDA-Public Use
  Company Number: US-BAYER-200710685BCC

PATIENT

DRUGS (1)
  1. ASPIRIN [Suspect]
     Indication: CEREBROVASCULAR ACCIDENT

REACTIONS (1)
  - HAEMORRHAGE [None]
